FAERS Safety Report 6369247-1 (Version None)
Quarter: 2009Q3

REPORT INFORMATION
  Report Type: 
  Country: None (occurrence: None)
  Receive Date: 20090916
  Receipt Date: 20090908
  Transmission Date: 20100115
  Serious: Yes (Other)
  Sender: FDA-Public Use
  Company Number: ADR20752009

PATIENT
  Age: 31 Year
  Sex: Female

DRUGS (3)
  1. SERTRALINE HCL [Suspect]
     Dosage: 25MG, 50 MG;
  2. SEROXAT [Concomitant]
  3. ALPRAZOLAM [Concomitant]

REACTIONS (9)
  - AGITATION [None]
  - ALCOHOL POISONING [None]
  - DEPRESSION [None]
  - HOMICIDE [None]
  - INCORRECT DOSE ADMINISTERED [None]
  - RESTLESSNESS [None]
  - SUICIDAL IDEATION [None]
  - SUICIDE ATTEMPT [None]
  - TENSION [None]
